FAERS Safety Report 13260092 (Version 1)
Quarter: 2017Q1

REPORT INFORMATION
  Report Type: Spontaneous
  Country: US (occurrence: US)
  Receive Date: 20170222
  Receipt Date: 20170222
  Transmission Date: 20170428
  Serious: No
  Sender: FDA-Public Use
  Company Number: US-TEVA-692590USA

PATIENT
  Sex: Male

DRUGS (1)
  1. AMPHETAMINE W/DEXTROAMPHETAMINE [Suspect]
     Active Substance: AMPHETAMINE SULFATE\DEXTROAMPHETAMINE
     Indication: ATTENTION DEFICIT/HYPERACTIVITY DISORDER
     Dosage: AM AND PM AS NEEDED
     Route: 048
     Dates: start: 20160731

REACTIONS (6)
  - Fatigue [Unknown]
  - Headache [Unknown]
  - Mental disorder [Unknown]
  - Drug ineffective [Recovered/Resolved]
  - Feeling abnormal [Unknown]
  - Disturbance in attention [Unknown]
